FAERS Safety Report 15975184 (Version 2)
Quarter: 2019Q3

REPORT INFORMATION
  Report Type: Spontaneous
  Country: BR (occurrence: BR)
  Receive Date: 20190218
  Receipt Date: 20190729
  Transmission Date: 20191004
  Serious: Yes (Congenital Anomaly, Other)
  Sender: FDA-Public Use
  Company Number: BR-SA-2019SA037884

PATIENT
  Sex: Male
  Weight: 2.12 kg

DRUGS (7)
  1. NATELE [Concomitant]
     Active Substance: VITAMINS
     Indication: PREGNANCY
     Dosage: 1 DF, QD
     Route: 048
     Dates: start: 20181230
  2. LANTUS [Suspect]
     Active Substance: INSULIN GLARGINE
     Indication: DIABETES MELLITUS
     Dosage: 45 UIU, QD
     Route: 058
     Dates: start: 201509
  3. AMLODIPINE [Concomitant]
     Active Substance: AMLODIPINE BESYLATE
     Dosage: UNK
     Route: 065
  4. HUMALOG [Concomitant]
     Active Substance: INSULIN LISPRO
     Indication: DIABETES MELLITUS
     Dosage: 1 UI FOR EACH 2 G CARBOHYDRATE
     Route: 058
     Dates: start: 201509
  5. VITAMINS NOS [Concomitant]
     Active Substance: VITAMINS
     Dosage: UNK
     Route: 065
  6. VITAMIN D [VITAMIN D NOS] [Concomitant]
     Active Substance: VITAMIN D NOS
     Indication: PREGNANCY
     Dosage: 4000 UIU, QD
     Route: 048
     Dates: start: 201509
  7. ALDOMET [Concomitant]
     Active Substance: METHYLDOPA
     Dosage: UNK
     Route: 065

REACTIONS (8)
  - Placental insufficiency [Unknown]
  - Premature baby [Unknown]
  - Exposure via breast milk [Unknown]
  - Foetal growth abnormality [Unknown]
  - Foetal exposure during pregnancy [Unknown]
  - Foetal hypokinesia [Unknown]
  - Foetal growth restriction [Unknown]
  - Umbilical cord around neck [Unknown]
